FAERS Safety Report 9827023 (Version 1)
Quarter: 2013Q4

REPORT INFORMATION
  Report Type: Spontaneous
  Country: US (occurrence: None)
  Receive Date: 20131112
  Receipt Date: 20131112
  Transmission Date: 20140711
  Serious: Yes (Other)
  Sender: FDA-Public Use
  Company Number: FK201203384

PATIENT
  Age: 50 Year
  Sex: Male

DRUGS (2)
  1. NAROPIN INJECTION (ROPIVACAINE HYDROCHLORIDE) (ROPIVACAINE HYDROCHLORIDE) [Suspect]
     Indication: PRODUCT USED FOR UNKNOWN INDICATION
     Dosage: 3 ML, EPIDURAL
     Route: 008
  2. LIDOCAINE (LIDOCAINE) [Concomitant]

REACTIONS (4)
  - Convulsion [None]
  - Loss of consciousness [None]
  - Somnolence [None]
  - Feeling abnormal [None]
